FAERS Safety Report 15330659 (Version 1)
Quarter: 2018Q3

REPORT INFORMATION
  Report Type: Spontaneous
  Country: US (occurrence: US)
  Receive Date: 20180824
  Receipt Date: 20180824
  Transmission Date: 20181010
  Serious: Yes (Hospitalization)
  Sender: FDA-Public Use
  Company Number: None

PATIENT
  Sex: Female

DRUGS (2)
  1. DEXAMETHASON [Concomitant]
     Active Substance: DEXAMETHASONE
  2. ZELBORAF [Suspect]
     Active Substance: VEMURAFENIB
     Indication: BRAIN NEOPLASM MALIGNANT
     Dosage: ?          OTHER FREQUENCY:720 QAM, 480 QPM;?
     Route: 048
     Dates: start: 20180611

REACTIONS (2)
  - Hospitalisation [None]
  - Drug dose omission [None]
